FAERS Safety Report 22962798 (Version 3)
Quarter: 2023Q4

REPORT INFORMATION
  Report Type: Spontaneous
  Country: US (occurrence: US)
  Receive Date: 20230920
  Receipt Date: 20231106
  Transmission Date: 20240109
  Serious: No
  Sender: FDA-Public Use
  Company Number: US-PFIZER INC-202300299940

PATIENT
  Age: 13 Year
  Sex: Male
  Weight: 41.5 kg

DRUGS (1)
  1. BICILLIN L-A [Suspect]
     Active Substance: PENICILLIN G BENZATHINE
     Indication: Rheumatic fever
     Dosage: UNK, MONTHLY (GETS A MONTHLY DOSE)
     Route: 030
     Dates: start: 2017

REACTIONS (6)
  - Device use error [Unknown]
  - Incorrect dose administered by device [Unknown]
  - Injection site haemorrhage [Unknown]
  - Injection site bruising [Unknown]
  - Injection site pain [Unknown]
  - Injection site rash [Unknown]

NARRATIVE: CASE EVENT DATE: 20230905
